FAERS Safety Report 19833143 (Version 1)
Quarter: 2021Q3

REPORT INFORMATION
  Report Type: Report from Study
  Country: AR (occurrence: AR)
  Receive Date: 20210915
  Receipt Date: 20210915
  Transmission Date: 20211014
  Serious: Yes (Hospitalization)
  Sender: FDA-Public Use
  Company Number: NVSC2021AR124752

PATIENT
  Age: 75 Year
  Sex: Male

DRUGS (5)
  1. DIOVAN [Suspect]
     Active Substance: VALSARTAN
     Indication: CONGESTIVE CARDIOMYOPATHY
     Dosage: 160 MG, QD, IN THE MORNING AND AT NIGHT
     Route: 065
  2. CARVEDILOL. [Concomitant]
     Active Substance: CARVEDILOL
     Dosage: UNK
     Route: 065
  3. DIOVAN [Suspect]
     Active Substance: VALSARTAN
     Indication: CARDIOMYOPATHY
  4. CARVEDILOL. [Concomitant]
     Active Substance: CARVEDILOL
     Indication: PRODUCT USED FOR UNKNOWN INDICATION
     Dosage: UNK
     Route: 065
  5. DIOVAN [Suspect]
     Active Substance: VALSARTAN
     Indication: HYPERTENSION
     Dosage: 160 MG, QD IN THE MORNING AND AT NIGHT, APPROX. 10 YEARS AGO
     Route: 065
     Dates: end: 202102

REACTIONS (9)
  - Pulmonary mass [Unknown]
  - Fear [Unknown]
  - Malaise [Unknown]
  - Gait disturbance [Unknown]
  - Cardiac disorder [Unknown]
  - Nervousness [Unknown]
  - Product use in unapproved indication [Unknown]
  - Bundle branch block left [Unknown]
  - Wrong technique in product usage process [Unknown]

NARRATIVE: CASE EVENT DATE: 20210902
